FAERS Safety Report 24309331 (Version 1)
Quarter: 2024Q3

REPORT INFORMATION
  Report Type: Report from Study
  Country: US (occurrence: US)
  Receive Date: 20240911
  Receipt Date: 20240911
  Transmission Date: 20241017
  Serious: No
  Sender: SUNOVION
  Company Number: US-SUMITOMO PHARMA SWITZERLAND GMBH-2024SPA001523

PATIENT

DRUGS (1)
  1. ORGOVYX [Suspect]
     Active Substance: RELUGOLIX
     Indication: Prostate cancer
     Dosage: 120 MG, QD
     Route: 048
     Dates: start: 20240213

REACTIONS (7)
  - Angiopathy [Unknown]
  - Apathy [Unknown]
  - Somnolence [Unknown]
  - Weight increased [Unknown]
  - Pain in extremity [Unknown]
  - Fatigue [Unknown]
  - Off label use [Unknown]
